FAERS Safety Report 21936447 (Version 1)
Quarter: 2023Q1

REPORT INFORMATION
  Report Type: Report from Study
  Country: US (occurrence: US)
  Receive Date: 20230201
  Receipt Date: 20230201
  Transmission Date: 20230418
  Serious: No
  Sender: FDA-Public Use
  Company Number: US-INCYTE CORPORATION-2020IN012270

PATIENT

DRUGS (4)
  1. PEMIGATINIB [Suspect]
     Active Substance: PEMIGATINIB
     Indication: Bile duct cancer
     Dosage: 13.5 MILLIGRAM
     Route: 065
  2. PEMIGATINIB [Suspect]
     Active Substance: PEMIGATINIB
     Dosage: 13.5 MILLIGRAM, QAM X 14 DAYS THEN 7 DAYS OFF
     Route: 065
     Dates: start: 20201210
  3. PEMIGATINIB [Suspect]
     Active Substance: PEMIGATINIB
     Dosage: 9 MILLIGRAM
     Route: 065
  4. PEMIGATINIB [Suspect]
     Active Substance: PEMIGATINIB
     Dosage: 13.5 MILLIGRAM
     Route: 048
     Dates: start: 20201210

REACTIONS (2)
  - Eye disorder [Unknown]
  - Drug ineffective [Unknown]
